FAERS Safety Report 10648857 (Version 1)
Quarter: 2014Q4

REPORT INFORMATION
  Report Type: Spontaneous
  Country: US (occurrence: None)
  Receive Date: 20141205
  Receipt Date: 20141205
  Transmission Date: 20150529
  Serious: No
  Sender: FDA-Public Use
  Company Number: USA-2014100304

PATIENT
  Age: 80 Year
  Sex: Male

DRUGS (1)
  1. POMALIDOMIDE [Suspect]
     Active Substance: POMALIDOMIDE
     Indication: PLASMA CELL MYELOMA
     Dosage: 2 MG,  28 IN 28,  PO
     Route: 048
     Dates: start: 20140703

REACTIONS (3)
  - Blood urea abnormal [None]
  - Blood creatinine abnormal [None]
  - Full blood count abnormal [None]

NARRATIVE: CASE EVENT DATE: 20140909
